FAERS Safety Report 8464954-9 (Version None)
Quarter: 2012Q2

REPORT INFORMATION
  Report Type: 
  Country: None (occurrence: None)
  Receive Date: 20120323
  Receipt Date: 20111122
  Transmission Date: 20120825
  Serious: Yes (Hospitalization)
  Sender: FDA-Public Use
  Company Number: 163-21880-11093072

PATIENT
  Age: 80 Year
  Sex: Male

DRUGS (3)
  1. REVLIMID [Suspect]
     Indication: MYELOFIBROSIS
     Dosage: 10 MG, 1 IN 1 D, PO 10 MG, DAILY, PO
     Route: 048
     Dates: start: 20110901
  2. REVLIMID [Suspect]
     Indication: MYELOFIBROSIS
     Dosage: 10 MG, 1 IN 1 D, PO 10 MG, DAILY, PO
     Route: 048
     Dates: start: 20090201, end: 20110901
  3. ANTIBIOTICS (ANTIBIOTICS) (UNKNOWN) [Concomitant]

REACTIONS (1)
  - ARTHRITIS INFECTIVE [None]
